FAERS Safety Report 12987360 (Version 1)
Quarter: 2016Q4

REPORT INFORMATION
  Report Type: Spontaneous
  Country: US (occurrence: US)
  Receive Date: 20161130
  Receipt Date: 20161130
  Transmission Date: 20170207
  Serious: No
  Sender: FDA-Public Use
  Company Number: US-ENDO PHARMACEUTICALS INC.-2016-001823

PATIENT
  Sex: Female
  Weight: 85.81 kg

DRUGS (5)
  1. NEXIUM 24HR [Concomitant]
     Active Substance: ESOMEPRAZOLE MAGNESIUM
     Indication: DYSPEPSIA
  2. ATENOLOL TABLETS 25 MG [Suspect]
     Active Substance: ATENOLOL
     Indication: HYPERTENSION
     Route: 065
  3. HYDROCHLOROTHIAZIDE TABLETS 25 MG [Suspect]
     Active Substance: HYDROCHLOROTHIAZIDE
     Route: 065
  4. HYDROCHLOROTHIAZIDE TABLETS 25 MG [Suspect]
     Active Substance: HYDROCHLOROTHIAZIDE
     Indication: HYPERTENSION
     Route: 065
  5. ALPRAZOLAM TABLETS 0.5 MG [Concomitant]
     Active Substance: ALPRAZOLAM
     Indication: ANXIETY

REACTIONS (2)
  - Hypotension [Recovered/Resolved]
  - Intentional product use issue [Not Recovered/Not Resolved]
